FAERS Safety Report 20735922 (Version 4)
Quarter: 2023Q1

REPORT INFORMATION
  Report Type: Spontaneous
  Country: AR (occurrence: AR)
  Receive Date: 20220421
  Receipt Date: 20230320
  Transmission Date: 20230418
  Serious: Yes (Other)
  Sender: FDA-Public Use
  Company Number: AR-SA-SAC20220418001347

PATIENT

DRUGS (2)
  1. LARONIDASE [Suspect]
     Active Substance: LARONIDASE
     Indication: Mucopolysaccharidosis I
     Dosage: 10 DF (VIALS), QW
     Route: 041
     Dates: end: 202109
  2. LARONIDASE [Suspect]
     Active Substance: LARONIDASE
     Dosage: 10 DF(VIALS), QW
     Route: 041

REACTIONS (5)
  - Glaucoma [Unknown]
  - Suicidal ideation [Unknown]
  - Depression [Unknown]
  - Mental disorder [Unknown]
  - Diarrhoea [Unknown]

NARRATIVE: CASE EVENT DATE: 20160101
